FAERS Safety Report 8773364 (Version 2)
Quarter: 2012Q4

REPORT INFORMATION
  Report Type: 
  Country: DE (occurrence: DE)
  Receive Date: 20120907
  Receipt Date: 20121210
  Transmission Date: 20130627
  Serious: Yes (Hospitalization, Other)
  Sender: FDA-Public Use
  Company Number: DE-CELGENEUS-062-50794-12090076

PATIENT
  Age: 75 Year
  Sex: Female
  Weight: 83 kg

DRUGS (9)
  1. VIDAZA [Suspect]
     Indication: MDS
     Dosage: 98 Milligram
     Route: 058
     Dates: start: 20120312, end: 20120320
  2. VIDAZA [Suspect]
     Route: 058
     Dates: start: 20120831
  3. VIDAZA [Suspect]
     Dosage: 98 Milligram
     Route: 058
     Dates: start: 20120507, end: 20120511
  4. VIDAZA [Suspect]
     Dosage: 98 Milligram
     Route: 058
     Dates: start: 20120711, end: 20120713
  5. VIDAZA [Suspect]
     Dosage: 98 Milligram
     Route: 058
     Dates: start: 20120410, end: 20120418
  6. KEVATRIL [Interacting]
     Indication: NAUSEA PROPHYLAXIS
     Dosage: 3 Milligram
     Route: 041
     Dates: start: 20120711, end: 20120713
  7. KEVATRIL [Interacting]
     Dosage: 3 Milligram
     Route: 041
     Dates: start: 20120410, end: 20120418
  8. KEVATRIL [Interacting]
     Dosage: 3 Milligram
     Route: 041
     Dates: start: 20120312, end: 20120320
  9. KEVATRIL [Interacting]
     Dosage: 3 Milligram
     Route: 041
     Dates: start: 20120507, end: 20120511

REACTIONS (2)
  - Cataract [Unknown]
  - Optic ischaemic neuropathy [Recovered/Resolved]
